FAERS Safety Report 5923254-9 (Version None)
Quarter: 2008Q4

REPORT INFORMATION
  Report Type: 
  Country: None (occurrence: None)
  Receive Date: 20081020
  Receipt Date: 20081014
  Transmission Date: 20090506
  Serious: Yes (Other)
  Sender: FDA-Public Use
  Company Number: US-ASTRAZENECA-2008UW22577

PATIENT
  Age: 64 Year
  Sex: Female

DRUGS (10)
  1. ARIMIDEX [Suspect]
     Route: 048
     Dates: start: 20070601
  2. AVAPRO [Concomitant]
  3. POTASSIUM CHLORIDE [Concomitant]
  4. HYDROCHLOROTHIAZIDE [Concomitant]
  5. ASPIRIN [Concomitant]
  6. MULTI-VITAMIN [Concomitant]
  7. CALCIUM [Concomitant]
  8. PRED FORTE [Concomitant]
     Route: 047
  9. COMBIGIAN [Concomitant]
     Route: 047
  10. SALOXIN [Concomitant]
     Route: 047

REACTIONS (2)
  - ARTHRITIS [None]
  - CORNEAL TRANSPLANT [None]
